FAERS Safety Report 6803380-2 (Version None)
Quarter: 2010Q2

REPORT INFORMATION
  Report Type: 
  Country: None (occurrence: None)
  Receive Date: 20100628
  Receipt Date: 20100621
  Transmission Date: 20101027
  Serious: Yes (Other)
  Sender: FDA-Public Use
  Company Number: US-PFIZER INC-2010077971

PATIENT
  Sex: Female
  Weight: 76.19 kg

DRUGS (8)
  1. CELEBREX [Suspect]
     Indication: OSTEOARTHRITIS
     Dosage: 200 MG, 2X/DAY
     Route: 048
  2. CELEBREX [Suspect]
     Indication: FIBROMYALGIA
  3. NEXIUM [Concomitant]
     Dosage: UNK
  4. SKELAXIN [Concomitant]
     Dosage: UNK
  5. PRAVACHOL [Concomitant]
     Dosage: UNK
  6. MONTELUKAST SODIUM [Concomitant]
     Dosage: UNK
  7. ZOLOFT [Concomitant]
     Dosage: UNK
  8. LEVOTHYROXINE [Concomitant]
     Dosage: UNK

REACTIONS (6)
  - ANAEMIA [None]
  - BODY HEIGHT DECREASED [None]
  - DIABETES MELLITUS [None]
  - GASTRITIS [None]
  - HYPERTENSION [None]
  - IRRITABLE BOWEL SYNDROME [None]
